FAERS Safety Report 10600200 (Version 3)
Quarter: 2017Q4

REPORT INFORMATION
  Report Type: Spontaneous
  Country: US (occurrence: US)
  Receive Date: 20141122
  Receipt Date: 20171020
  Transmission Date: 20180320
  Serious: Yes (Other)
  Sender: FDA-Public Use
  Company Number: US-ASTRAZENECA-2014SE88191

PATIENT
  Age: 64 Year
  Sex: Female

DRUGS (28)
  1. MIRALAX [Concomitant]
     Active Substance: POLYETHYLENE GLYCOL 3350
     Indication: CONSTIPATION
     Dates: start: 20140628, end: 20140702
  2. MORPHINE [Suspect]
     Active Substance: MORPHINE
     Indication: CHILLS
     Route: 065
  3. COLECALCIFEROL [Concomitant]
     Active Substance: CHOLECALCIFEROL
     Indication: HYPOVITAMINOSIS
     Dates: start: 20140628
  4. FUROSEMIDE. [Concomitant]
     Active Substance: FUROSEMIDE
     Indication: POLYURIA
     Dates: start: 20140627, end: 20140712
  5. LISINOPRIL. [Suspect]
     Active Substance: LISINOPRIL
     Indication: HYPERTENSION
     Route: 048
  6. FUROSEMIDE. [Concomitant]
     Active Substance: FUROSEMIDE
     Indication: POLYURIA
     Dates: start: 20140710, end: 20140710
  7. MOXIFLOXACIN. [Concomitant]
     Active Substance: MOXIFLOXACIN
     Indication: PROPHYLAXIS
     Dates: start: 20140624, end: 20140702
  8. OXYCODONE [Concomitant]
     Active Substance: OXYCODONE
     Indication: BACK PAIN
     Dates: start: 20140623
  9. LOPERAMIDE [Concomitant]
     Active Substance: LOPERAMIDE
     Indication: DIARRHOEA
     Dates: start: 20140707, end: 20140712
  10. ONDANSETRON [Concomitant]
     Active Substance: ONDANSETRON
     Indication: VOMITING
     Dates: start: 20140627, end: 20140704
  11. LORAZEPAM. [Concomitant]
     Active Substance: LORAZEPAM
     Indication: INSOMNIA
     Dates: start: 20140625
  12. PANTOPRAZOLE [Concomitant]
     Active Substance: PANTOPRAZOLE
     Indication: PROPHYLAXIS
     Dates: start: 20140628
  13. KCL [Concomitant]
     Active Substance: POTASSIUM CHLORIDE
     Indication: BLOOD POTASSIUM DECREASED
     Dates: start: 20140705, end: 20140709
  14. VANCOMYCIN [Concomitant]
     Active Substance: VANCOMYCIN
     Indication: PROPHYLAXIS
     Dates: start: 20140702, end: 20140703
  15. LACTULOSE. [Concomitant]
     Active Substance: LACTULOSE
     Indication: CONSTIPATION
     Dates: start: 20140702, end: 20140702
  16. ACETAMINOPHEN. [Concomitant]
     Active Substance: ACETAMINOPHEN
     Indication: PYREXIA
     Dates: start: 20140702
  17. ALLOPURINOL. [Concomitant]
     Active Substance: ALLOPURINOL
     Indication: PROPHYLAXIS
     Dates: start: 20140628, end: 20140704
  18. ONDANSETRON [Concomitant]
     Active Substance: ONDANSETRON
     Indication: NAUSEA
     Dates: start: 20140627, end: 20140704
  19. SENNA [Concomitant]
     Active Substance: SENNA LEAF\SENNOSIDES\SENNOSIDES A AND B
     Indication: CONSTIPATION
     Dates: start: 20140630, end: 20140704
  20. SEVELAMER [Concomitant]
     Active Substance: SEVELAMER
     Indication: PROPHYLAXIS
     Dates: start: 20140624, end: 20140705
  21. MEROPENEM. [Suspect]
     Active Substance: MEROPENEM
     Indication: PROPHYLAXIS
     Route: 042
     Dates: start: 20140712, end: 20140729
  22. CYTARABINE. [Suspect]
     Active Substance: CYTARABINE
     Indication: ACUTE MYELOID LEUKAEMIA
     Dosage: 190 MG, CONTINUOS INFUSION ON DAYS 1-7
     Route: 042
     Dates: start: 20140627, end: 20140704
  23. MICAFUNGIN [Concomitant]
     Active Substance: MICAFUNGIN
     Indication: PROPHYLAXIS
     Dates: start: 20140701
  24. PIPERACILLIN [Concomitant]
     Active Substance: PIPERACILLIN
     Indication: PROPHYLAXIS
     Dates: start: 20140724
  25. VALTREX [Concomitant]
     Active Substance: VALACYCLOVIR HYDROCHLORIDE
     Indication: PROPHYLAXIS
     Dates: start: 20140624
  26. DAUNORUBICIN [Suspect]
     Active Substance: DAUNORUBICIN
     Indication: ACUTE MYELOID LEUKAEMIA
     Dosage: 111 MG, ONCE DAILY ON DAYS 1-3
     Route: 040
     Dates: start: 20140627, end: 20140629
  27. CAPTOPRIL. [Concomitant]
     Active Substance: CAPTOPRIL
     Indication: HYPERTENSION
     Dates: start: 20140627, end: 20140712
  28. DOCUSATE [Concomitant]
     Active Substance: DOCUSATE
     Indication: CONSTIPATION
     Dates: start: 20130630, end: 20140703

REACTIONS (15)
  - Gastrointestinal haemorrhage [Recovered/Resolved]
  - Bone marrow failure [Unknown]
  - Loss of consciousness [Unknown]
  - Myoclonus [Unknown]
  - Upper gastrointestinal haemorrhage [Recovered/Resolved]
  - Postmenopausal haemorrhage [Unknown]
  - Dyskinesia [Recovered/Resolved]
  - Myocardial infarction [Unknown]
  - Hepatic cyst [Unknown]
  - Pancytopenia [Unknown]
  - Acute myeloid leukaemia [Unknown]
  - Hyperlipidaemia [Unknown]
  - Myelodysplastic syndrome [Unknown]
  - Presyncope [Recovered/Resolved]
  - Gastrointestinal erosion [Unknown]

NARRATIVE: CASE EVENT DATE: 201201
